FAERS Safety Report 4556398-7 (Version None)
Quarter: 2005Q1

REPORT INFORMATION
  Report Type: 
  Country: None (occurrence: None)
  Receive Date: 20050114
  Receipt Date: 20050104
  Transmission Date: 20050727
  Serious: Yes (Hospitalization)
  Sender: FDA-Public Use
  Company Number: 2004US001470

PATIENT
  Age: 6 Year
  Sex: Male

DRUGS (9)
  1. PROGRAF [Suspect]
     Indication: PROPHYLAXIS AGAINST TRANSPLANT REJECTION
     Dosage: SEE IMAGE
     Route: 048
     Dates: start: 20000101
  2. PROGRAF [Suspect]
     Indication: PROPHYLAXIS AGAINST TRANSPLANT REJECTION
     Dosage: SEE IMAGE
     Route: 048
     Dates: start: 20041117
  3. SIROLIMUS (SIROLIMUS) [Suspect]
     Indication: KIDNEY TRANSPLANT REJECTION
     Dosage: SEE IMAGE
     Route: 048
     Dates: start: 20040401
  4. SIROLIMUS (SIROLIMUS) [Suspect]
     Indication: PROPHYLAXIS
     Dosage: SEE IMAGE
     Route: 048
     Dates: start: 20040401
  5. ZITHROMAX [Suspect]
     Dosage: SEE IMAGE
     Route: 048
     Dates: start: 20041104, end: 20041104
  6. ZITHROMAX [Suspect]
     Dosage: SEE IMAGE
     Route: 048
     Dates: start: 20041105, end: 20041109
  7. PREDNISONE [Concomitant]
  8. SEPTRA [Concomitant]
  9. ASPIRIN [Concomitant]

REACTIONS (17)
  - ACCIDENTAL OVERDOSE [None]
  - ANAEMIA [None]
  - BONE MARROW TOXICITY [None]
  - BRONCHITIS [None]
  - DELUSION [None]
  - DISCOMFORT [None]
  - DISORIENTATION [None]
  - DRUG INTERACTION [None]
  - DRUG LEVEL INCREASED [None]
  - DRUG TOXICITY [None]
  - FEELING HOT [None]
  - MALAISE [None]
  - MEDICATION ERROR [None]
  - NEUROLOGICAL SYMPTOM [None]
  - RENAL IMPAIRMENT [None]
  - SINUSITIS [None]
  - SLEEP DISORDER [None]
